FAERS Safety Report 7631530-7 (Version None)
Quarter: 2011Q3

REPORT INFORMATION
  Report Type: 
  Country: None (occurrence: None)
  Receive Date: 20110725
  Receipt Date: 20110719
  Transmission Date: 20111222
  Serious: Yes (Hospitalization)
  Sender: FDA-Public Use
  Company Number: CA-B.I. PHARMACEUTICALS,INC./RIDGEFIELD-2011-CN-00980CN

PATIENT

DRUGS (2)
  1. PRILOSEC [Concomitant]
  2. PRADAXA [Suspect]
     Dosage: 300 MG

REACTIONS (2)
  - RENAL FAILURE ACUTE [None]
  - DEHYDRATION [None]
